FAERS Safety Report 4361064-7 (Version None)
Quarter: 2004Q2

REPORT INFORMATION
  Report Type: 
  Country: None (occurrence: None)
  Receive Date: 20040517
  Receipt Date: 20040429
  Transmission Date: 20050107
  Serious: Yes (Death)
  Sender: FDA-Public Use
  Company Number: 2004031867

PATIENT
  Age: 3 Year
  Sex: Male

DRUGS (5)
  1. AZITHROMYCIN [Suspect]
     Indication: HEPATITIS
     Dosage: 100 MG (1 IN 1 D), INTRAVENOUS
     Route: 042
     Dates: start: 20040318, end: 20040322
  2. AZITHROMYCIN [Suspect]
     Indication: PNEUMONIA MYCOPLASMAL
     Dosage: 100 MG (1 IN 1 D), INTRAVENOUS
     Route: 042
     Dates: start: 20040318, end: 20040322
  3. AZITHROMYCIN [Suspect]
     Indication: SEPSIS
     Dosage: 100 MG (1 IN 1 D), INTRAVENOUS
     Route: 042
     Dates: start: 20040318, end: 20040322
  4. HERBAL PREPARATION INGREDIENTS UNKNOWN (HERBAL PREPARATION INGREDIENTS [Concomitant]
  5. IMIPENEM (IMIPENEM) [Concomitant]

REACTIONS (4)
  - ATRIOVENTRICULAR BLOCK COMPLETE [None]
  - BRADYCARDIA [None]
  - CIRCULATORY COLLAPSE [None]
  - HYPOTENSION [None]
